FAERS Safety Report 9685100 (Version 1)
Quarter: 2013Q4

REPORT INFORMATION
  Report Type: Spontaneous
  Country: GB (occurrence: GB)
  Receive Date: 20131113
  Receipt Date: 20131113
  Transmission Date: 20140711
  Serious: Yes (Hospitalization, Other)
  Sender: FDA-Public Use
  Company Number: GB-JNJFOC-20131106004

PATIENT
  Age: 79 Year
  Sex: Male

DRUGS (14)
  1. XARELTO [Suspect]
     Indication: CEREBROVASCULAR ACCIDENT PROPHYLAXIS
     Route: 048
  2. XARELTO [Suspect]
     Indication: CEREBROVASCULAR ACCIDENT PROPHYLAXIS
     Route: 048
     Dates: start: 201303, end: 20131018
  3. XARELTO [Suspect]
     Indication: ATRIAL FIBRILLATION
     Route: 048
  4. XARELTO [Suspect]
     Indication: ATRIAL FIBRILLATION
     Route: 048
     Dates: start: 201303, end: 20131018
  5. PARACETAMOL [Concomitant]
     Route: 065
  6. SIMVASTATIN [Concomitant]
     Route: 065
  7. OMEPRAZOLE [Concomitant]
     Route: 065
  8. VITAMIN B COMPLEX [Concomitant]
     Route: 065
  9. SPIRONOLACTONE [Concomitant]
     Route: 065
  10. THIAMINE [Concomitant]
     Route: 065
  11. FERROUS FUMARATE [Concomitant]
     Route: 065
  12. BISOPROLOL [Concomitant]
     Route: 065
  13. ALLOPURINOL [Concomitant]
     Route: 065
  14. RAMIPRIL [Concomitant]
     Route: 065

REACTIONS (4)
  - Liver function test abnormal [Not Recovered/Not Resolved]
  - Confusional state [Not Recovered/Not Resolved]
  - Renal impairment [Not Recovered/Not Resolved]
  - Malaise [Not Recovered/Not Resolved]
